FAERS Safety Report 6869754-9 (Version None)
Quarter: 2010Q3

REPORT INFORMATION
  Report Type: 
  Country: None (occurrence: None)
  Receive Date: 20100722
  Receipt Date: 20080902
  Transmission Date: 20110219
  Serious: No
  Sender: FDA-Public Use
  Company Number: US-PFIZER INC-2008067614

PATIENT
  Sex: Male
  Weight: 113.4 kg

DRUGS (10)
  1. CHANTIX [Suspect]
     Indication: SMOKING CESSATION THERAPY
     Dates: start: 20080801, end: 20080801
  2. BETA BLOCKING AGENTS [Concomitant]
  3. INSULIN [Concomitant]
  4. GLIPIZIDE [Concomitant]
  5. BUMETANIDE [Concomitant]
  6. PLAVIX [Concomitant]
  7. GEMFIBROZIL [Concomitant]
  8. BENAZEPRIL HYDROCHLORIDE [Concomitant]
  9. NAPROXEN [Concomitant]
  10. METOPROLOL SUCCINATE [Concomitant]

REACTIONS (1)
  - HEADACHE [None]
